FAERS Safety Report 7739554-6 (Version None)
Quarter: 2011Q3

REPORT INFORMATION
  Report Type: 
  Country: None (occurrence: None)
  Receive Date: 20110909
  Receipt Date: 20110907
  Transmission Date: 20111222
  Serious: Yes (Other)
  Sender: FDA-Public Use
  Company Number: JP-PFIZER INC-2011208862

PATIENT
  Age: 75 Year

DRUGS (1)
  1. ZYVOX [Suspect]
     Indication: MENINGITIS
     Dosage: UNK
     Route: 065

REACTIONS (2)
  - PLATELET COUNT DECREASED [None]
  - HYPONATRAEMIA [None]
